FAERS Safety Report 6941109-8 (Version None)
Quarter: 2010Q3

REPORT INFORMATION
  Report Type: 
  Country: None (occurrence: None)
  Receive Date: 20100825
  Receipt Date: 20100820
  Transmission Date: 20110219
  Serious: Yes (Hospitalization)
  Sender: FDA-Public Use
  Company Number: IT-B.I. PHARMACEUTICALS,INC./RIDGEFIELD-2010-IT-00176IT

PATIENT
  Sex: Male

DRUGS (12)
  1. MIRAPEX [Suspect]
     Indication: PARKINSON'S DISEASE
     Dosage: 2 POSOLOGIC UNITS DAILY
     Route: 048
     Dates: start: 20070503, end: 20100502
  2. MIRAPEX [Suspect]
     Dosage: 4.5 POSOLOGIC UNITS DAILY
     Dates: start: 20100503, end: 20100702
  3. NEUPRO [Suspect]
     Indication: PARKINSON'S DISEASE
     Dosage: ONE POSOLOGIC UNIT DAILY
     Route: 062
     Dates: start: 20100503, end: 20100510
  4. NEUPRO [Suspect]
     Dosage: 1 POSOLOGIC UNIT DAILY
     Route: 062
     Dates: start: 20100511, end: 20100622
  5. TAMSULOSIN HYDROCHLORIDE [Concomitant]
  6. STALEVO 100 [Concomitant]
     Dosage: 150MG/37.5MG/200MG, 4 POSOLOGIC UNIT
     Route: 048
     Dates: start: 20100101
  7. ASCRIPTIN [Concomitant]
  8. PRADIF [Concomitant]
  9. LOSAPREX [Concomitant]
  10. KCL RETARD [Concomitant]
  11. SINEMET [Concomitant]
  12. PLENDIL [Concomitant]

REACTIONS (5)
  - DIZZINESS [None]
  - DROP ATTACKS [None]
  - INJURY [None]
  - PRESYNCOPE [None]
  - VISION BLURRED [None]
